FAERS Safety Report 24775225 (Version 1)
Quarter: 2024Q4

REPORT INFORMATION
  Report Type: Report from Study
  Country: PY (occurrence: PY)
  Receive Date: 20241226
  Receipt Date: 20241226
  Transmission Date: 20250114
  Serious: Yes (Hospitalization, Other)
  Sender: ROCHE
  Company Number: PY-ROCHE-10000130824

PATIENT
  Age: 74 Year
  Sex: Female

DRUGS (5)
  1. ACTEMRA [Suspect]
     Active Substance: TOCILIZUMAB
     Indication: Rheumatoid arthritis
     Dosage: TOCILIZUMAB?DOSE: 162MG/0,9ML
     Route: 058
     Dates: start: 20240708
  2. METRONIDAZOLE [Concomitant]
     Active Substance: METRONIDAZOLE
     Dosage: DOSE AND FREQUENCY WERE NOT REPORTED
  3. Calcitron D3 Forte [Concomitant]
     Dosage: DOSE AND FREQUENCY WERE NOT REPORTED
  4. LOSARTAN [Concomitant]
     Active Substance: LOSARTAN
     Dosage: FREQUENCY WAS NOT REPORTED
  5. NPH INSULIN [Concomitant]
     Active Substance: INSULIN BEEF
     Indication: Diabetes mellitus
     Dosage: DOSE AND FREQUENCY WERE NOT REPORTED

REACTIONS (5)
  - Toxicity to various agents [Recovered/Resolved]
  - Immunosuppression [Recovered/Resolved]
  - Mouth ulceration [Recovered/Resolved]
  - Toxicity to various agents [Unknown]
  - Pancytopenia [Unknown]

NARRATIVE: CASE EVENT DATE: 20240925
